FAERS Safety Report 5867597-6 (Version None)
Quarter: 2008Q3

REPORT INFORMATION
  Report Type: 
  Country: None (occurrence: None)
  Receive Date: 20080902
  Receipt Date: 20071024
  Transmission Date: 20090109
  Serious: No
  Sender: FDA-Public Use
  Company Number: US-ABBOTT-07P-163-0422220-00

PATIENT
  Sex: Female
  Weight: 74.91 kg

DRUGS (2)
  1. DEPAKOTE ER [Suspect]
     Indication: BIPOLAR DISORDER
     Route: 048
     Dates: start: 20010101, end: 20020101
  2. DEPAKOTE ER [Suspect]
     Route: 048
     Dates: start: 20070801

REACTIONS (5)
  - GINGIVAL PAIN [None]
  - MYDRIASIS [None]
  - SENSITIVITY OF TEETH [None]
  - TREMOR [None]
  - WEIGHT INCREASED [None]
